FAERS Safety Report 7010611-5 (Version None)
Quarter: 2010Q3

REPORT INFORMATION
  Report Type: 
  Country: None (occurrence: None)
  Receive Date: 20100923
  Receipt Date: 20100917
  Transmission Date: 20110219
  Serious: Yes (Hospitalization)
  Sender: FDA-Public Use
  Company Number: US-AMGEN-KDL439351

PATIENT
  Sex: Female

DRUGS (1)
  1. ENBREL [Suspect]
     Indication: RHEUMATOID ARTHRITIS
     Route: 058
     Dates: start: 20060901

REACTIONS (5)
  - ARTHRALGIA [None]
  - IMPLANT SITE PAIN [None]
  - INJECTION SITE PAIN [None]
  - JOINT DESTRUCTION [None]
  - OSTEOPOROSIS [None]
